FAERS Safety Report 4360262-6 (Version None)
Quarter: 2004Q2

REPORT INFORMATION
  Report Type: 
  Country: None (occurrence: None)
  Receive Date: 20040518
  Receipt Date: 20040518
  Transmission Date: 20050107
  Serious: No
  Sender: FDA-Public Use
  Company Number: None

PATIENT
  Sex: Female

DRUGS (2)
  1. BUPIVICAINE EPIDURAL 0.125% [Suspect]
  2. FENTANYL 1 MCG/ML [Suspect]

REACTIONS (7)
  - ASPIRATION [None]
  - COMA [None]
  - DRUG EXPOSURE DURING PREGNANCY [None]
  - EYE ROLLING [None]
  - NAUSEA [None]
  - SYNCOPE VASOVAGAL [None]
  - VOMITING [None]
